FAERS Safety Report 5249424-3 (Version None)
Quarter: 2007Q1

REPORT INFORMATION
  Report Type: 
  Country: None (occurrence: None)
  Receive Date: 20070228
  Receipt Date: 20061019
  Transmission Date: 20070707
  Serious: No
  Sender: FDA-Public Use
  Company Number: US-GLAXOSMITHKLINE-A0624213A

PATIENT
  Age: 57 Year
  Sex: Female

DRUGS (5)
  1. VALTREX [Suspect]
     Route: 048
     Dates: start: 20061017
  2. ZOVIRAX [Suspect]
     Route: 061
     Dates: start: 20061016
  3. LYSINE [Concomitant]
  4. HORMONE REPLACEMENT THERAPY [Concomitant]
     Route: 061
  5. DOXEPIN HCL [Concomitant]

REACTIONS (2)
  - BURNING SENSATION [None]
  - PAIN [None]
